FAERS Safety Report 4988832-2 (Version None)
Quarter: 2006Q2

REPORT INFORMATION
  Report Type: 
  Country: None (occurrence: None)
  Receive Date: 20060502
  Receipt Date: 20060301
  Transmission Date: 20061013
  Serious: Yes (Hospitalization, Other)
  Sender: FDA-Public Use
  Company Number: US-MERCK-0603USA00453

PATIENT
  Age: 62 Year
  Sex: Male
  Weight: 73 kg

DRUGS (20)
  1. VIOXX [Suspect]
     Indication: BACK PAIN
     Route: 048
     Dates: start: 20011109, end: 20030203
  2. VICODIN [Concomitant]
     Route: 065
  3. METHADONE HYDROCHLORIDE [Concomitant]
     Route: 065
  4. ZITHROMAX [Concomitant]
     Route: 065
  5. MEDROL [Concomitant]
     Route: 065
  6. KEFLEX [Concomitant]
     Route: 065
  7. VICOPROFEN [Concomitant]
     Route: 065
  8. NULYTELY [Concomitant]
     Route: 065
  9. ATIVAN [Concomitant]
     Route: 065
  10. ENALAPRIL MALEATE [Concomitant]
     Route: 065
  11. TUSSIONEX (CHLORPHENIRAMINE POLISTIREX (+) HYDROCODONE POLISTIREX) [Concomitant]
     Route: 065
  12. PREDNISONE [Concomitant]
     Route: 065
  13. LEVAQUIN [Concomitant]
     Route: 065
  14. BACTRIM DS [Concomitant]
     Route: 065
  15. CLOBETASOL PROPIONATE [Concomitant]
     Route: 065
  16. ADVAIR DISKUS 100/50 [Concomitant]
     Route: 065
  17. ALBUTEROL [Concomitant]
     Route: 065
  18. SINGULAIR [Concomitant]
     Route: 065
  19. MOTRIN [Concomitant]
     Route: 065
  20. AZMACORT [Concomitant]
     Route: 065

REACTIONS (36)
  - ACUTE MYOCARDIAL INFARCTION [None]
  - ACUTE RESPIRATORY FAILURE [None]
  - ANAEMIA [None]
  - ANGIOPATHY [None]
  - ANXIETY [None]
  - BACK DISORDER [None]
  - BACK PAIN [None]
  - BLOOD PRESSURE INCREASED [None]
  - CANDIDIASIS [None]
  - CARDIAC ARREST [None]
  - CARDIAC FAILURE [None]
  - CARDIAC FAILURE CONGESTIVE [None]
  - CHRONIC OBSTRUCTIVE PULMONARY DISEASE [None]
  - DEPRESSED LEVEL OF CONSCIOUSNESS [None]
  - DYSPNOEA [None]
  - ENCEPHALOPATHY [None]
  - GASTRITIS [None]
  - GASTROINTESTINAL HAEMORRHAGE [None]
  - HEART RATE IRREGULAR [None]
  - HYPOXIA [None]
  - ILEUS [None]
  - ILIAC ARTERY OCCLUSION [None]
  - LEUKOCYTOSIS [None]
  - MYOCARDIAL INFARCTION [None]
  - NEOPLASM MALIGNANT [None]
  - NEUROPATHY PERIPHERAL [None]
  - PERIPHERAL VASCULAR DISORDER [None]
  - PERONEAL NERVE PALSY [None]
  - PNEUMONIA [None]
  - PULMONARY OEDEMA [None]
  - RENAL FAILURE [None]
  - RENAL FAILURE ACUTE [None]
  - RENAL TUBULAR NECROSIS [None]
  - RESPIRATORY ACIDOSIS [None]
  - TACHYCARDIA [None]
  - WOUND INFECTION STAPHYLOCOCCAL [None]
